FAERS Safety Report 25629763 (Version 1)
Quarter: 2025Q3

REPORT INFORMATION
  Report Type: Spontaneous
  Country: JP (occurrence: JP)
  Receive Date: 20250731
  Receipt Date: 20250731
  Transmission Date: 20251020
  Serious: Yes (Other)
  Sender: DEVA
  Company Number: JP-DEVA-2025-JP-000112

PATIENT
  Age: 51 Year
  Sex: Female

DRUGS (1)
  1. CEFTRIAXONE [Suspect]
     Active Substance: CEFTRIAXONE
     Indication: Leptospirosis

REACTIONS (1)
  - Jarisch-Herxheimer reaction [Unknown]
